FAERS Safety Report 11167640 (Version 1)
Quarter: 2015Q2

REPORT INFORMATION
  Report Type: Spontaneous
  Country: US (occurrence: None)
  Receive Date: 20150604
  Receipt Date: 20150604
  Transmission Date: 20150821
  Serious: Yes (Hospitalization)
  Sender: FDA-Public Use
  Company Number: None

PATIENT
  Age: 62 Year
  Sex: Female

DRUGS (9)
  1. OXYCONTIN [Suspect]
     Active Substance: OXYCODONE HYDROCHLORIDE
     Indication: ARTHRALGIA
     Dosage: 1 PILL
     Route: 048
     Dates: end: 20150422
  2. CALSIUM [Concomitant]
  3. OXYCONTIN [Suspect]
     Active Substance: OXYCODONE HYDROCHLORIDE
     Indication: BACK PAIN
     Dosage: 1 PILL
     Route: 048
     Dates: end: 20150422
  4. OXYCONTIN [Suspect]
     Active Substance: OXYCODONE HYDROCHLORIDE
     Indication: COMPLEX REGIONAL PAIN SYNDROME
     Dosage: 1 PILL
     Route: 048
     Dates: end: 20150422
  5. CODINE [Concomitant]
     Active Substance: CODEINE
  6. OXYCODONE [Suspect]
     Active Substance: OXYCODONE
     Dates: start: 20150227, end: 20150422
  7. VITAMIN C [Concomitant]
     Active Substance: ASCORBIC ACID
  8. IRON [Concomitant]
     Active Substance: IRON
  9. ALMOPLINE [Concomitant]

REACTIONS (16)
  - Muscle spasms [None]
  - Dry mouth [None]
  - Chills [None]
  - Epistaxis [None]
  - Drug ineffective [None]
  - Vision blurred [None]
  - Dyskinesia [None]
  - Speech disorder [None]
  - Dyspnoea [None]
  - Headache [None]
  - Insomnia [None]
  - Vertigo [None]
  - Abdominal pain upper [None]
  - Decreased appetite [None]
  - Pain [None]
  - Disturbance in attention [None]

NARRATIVE: CASE EVENT DATE: 20150504
